FAERS Safety Report 26132747 (Version 1)
Quarter: 2025Q4

REPORT INFORMATION
  Report Type: Report from Study
  Country: EU (occurrence: EU)
  Receive Date: 20251208
  Receipt Date: 20251208
  Transmission Date: 20260118
  Serious: Yes (Hospitalization)
  Sender: ABBVIE
  Company Number: EU-ABBVIE-6413582

PATIENT
  Age: 76 Year
  Sex: Female

DRUGS (2)
  1. FOSCARBIDOPA\FOSLEVODOPA [Suspect]
     Active Substance: FOSCARBIDOPA\FOSLEVODOPA
     Indication: Parkinson^s disease
     Dosage: SD: 0,30ML, CRN: 0,15ML/H, CR: 0,17ML/H, CRH: 0,19ML/H, ED: 0,20ML?LAST ADMIN TEXT: 2025
     Route: 058
     Dates: start: 20250708
  2. FOSCARBIDOPA\FOSLEVODOPA [Suspect]
     Active Substance: FOSCARBIDOPA\FOSLEVODOPA
     Dosage: SD: 0.30 ML, CRN: 0.17 ML/H CR: 0.20 ML/H, CRH: 0.23 ML/H, ED: 0.20 ML?FIRST ADMIN DATE: 2025
     Route: 058

REACTIONS (6)
  - Dysstasia [Not Recovered/Not Resolved]
  - Infusion site inflammation [Recovering/Resolving]
  - Confusional state [Not Recovered/Not Resolved]
  - Infusion site erythema [Recovering/Resolving]
  - Hallucination [Not Recovered/Not Resolved]
  - Gait inability [Not Recovered/Not Resolved]

NARRATIVE: CASE EVENT DATE: 20250101
